FAERS Safety Report 4915281-5 (Version None)
Quarter: 2006Q1

REPORT INFORMATION
  Report Type: 
  Country: None (occurrence: None)
  Receive Date: 20060216
  Receipt Date: 20060216
  Transmission Date: 20060701
  Serious: Yes (Other)
  Sender: FDA-Public Use
  Company Number: None

PATIENT
  Sex: Female
  Weight: 92.5338 kg

DRUGS (1)
  1. PRILOSEC [Suspect]
     Indication: DYSPEPSIA
     Dosage: 1/DAY (MOUTH)
     Route: 048
     Dates: start: 20051211, end: 20051216

REACTIONS (4)
  - ABDOMINAL PAIN UPPER [None]
  - DRUG EFFECT DECREASED [None]
  - OESOPHAGEAL PAIN [None]
  - PHARMACEUTICAL PRODUCT COMPLAINT [None]
